FAERS Safety Report 8215394-9 (Version None)
Quarter: 2012Q1

REPORT INFORMATION
  Report Type: 
  Country: None (occurrence: None)
  Receive Date: 20120316
  Receipt Date: 20120309
  Transmission Date: 20120608
  Serious: Yes (Hospitalization)
  Sender: FDA-Public Use
  Company Number: BR-PFIZER INC-2012064486

PATIENT
  Age: 70 Year
  Sex: Female

DRUGS (7)
  1. ALENDRONATE SODIUM [Concomitant]
     Indication: BONE DISORDER
     Dosage: ONE TABLET, ONCE WEEKLY
  2. METFORMIN [Concomitant]
     Indication: DIABETES MELLITUS
     Dosage: 850
  3. XALATAN [Suspect]
     Indication: GLAUCOMA
     Dosage: ONE DROP IN EACH EYE, 1X/DAY
     Route: 047
     Dates: start: 20100601
  4. ENALAPRIL [Concomitant]
     Indication: HYPERTENSION
  5. GLUCOVANCE [Concomitant]
     Indication: DIABETES MELLITUS
     Dosage: 500/12.5
  6. CALCIUM [Concomitant]
     Indication: BONE DISORDER
  7. HYDROCHLOROTHIAZIDE [Concomitant]
     Indication: HYPERTENSION

REACTIONS (1)
  - CATARACT [None]
